FAERS Safety Report 9629843 (Version 1)
Quarter: 2013Q4

REPORT INFORMATION
  Report Type: Spontaneous
  Country: US (occurrence: US)
  Receive Date: 20131017
  Receipt Date: 20131017
  Transmission Date: 20140711
  Serious: Yes (Hospitalization)
  Sender: FDA-Public Use
  Company Number: US-BRISTOL-MYERS SQUIBB COMPANY-19510494

PATIENT
  Age: 80 Year
  Sex: Male

DRUGS (1)
  1. ELIQUIS [Suspect]
     Indication: INTERNATIONAL NORMALISED RATIO FLUCTUATION

REACTIONS (2)
  - Gastrointestinal haemorrhage [Unknown]
  - Renal impairment [Unknown]
